FAERS Safety Report 8359401-1 (Version None)
Quarter: 2012Q2

REPORT INFORMATION
  Report Type: 
  Country: None (occurrence: None)
  Receive Date: 20120514
  Receipt Date: 20120514
  Transmission Date: 20120825
  Serious: Yes (Other)
  Sender: FDA-Public Use
  Company Number: None

PATIENT
  Age: 17 Year
  Sex: Female
  Weight: 66.2252 kg

DRUGS (2)
  1. CAMILA [Concomitant]
  2. MIRENA [Suspect]
     Indication: URINARY TRACT INFECTION
     Dosage: LAST FOR FIVE YEAR VAG
     Route: 067
     Dates: start: 20111109, end: 20111120

REACTIONS (2)
  - URINARY TRACT INFECTION [None]
  - FUNGAL INFECTION [None]
